FAERS Safety Report 5602543-1 (Version None)
Quarter: 2008Q1

REPORT INFORMATION
  Report Type: 
  Country: None (occurrence: None)
  Receive Date: 20080125
  Receipt Date: 20080114
  Transmission Date: 20080703
  Serious: Yes (Hospitalization)
  Sender: FDA-Public Use
  Company Number: B0505020A

PATIENT
  Age: 83 Year
  Sex: Female

DRUGS (11)
  1. DEROXAT [Suspect]
     Indication: DEPRESSION
     Dosage: 20MG PER DAY
     Route: 048
     Dates: start: 20070816, end: 20070827
  2. ALDACTAZIDE [Suspect]
     Indication: HYPERTENSION
     Route: 048
     Dates: end: 20070827
  3. INEXIUM [Concomitant]
     Indication: HIATUS HERNIA
     Dosage: 20MG PER DAY
     Route: 048
     Dates: end: 20070827
  4. ISORYTHM [Concomitant]
     Indication: ARRHYTHMIA
     Dosage: 125MG PER DAY
     Route: 048
  5. SIBELIUM [Concomitant]
     Indication: MIGRAINE
     Route: 048
     Dates: start: 20070816, end: 20070827
  6. ISKEDYL FORT [Concomitant]
     Route: 048
     Dates: end: 20070827
  7. OPTRUMA [Concomitant]
     Indication: OSTEOPOROSIS POSTMENOPAUSAL
     Route: 048
     Dates: end: 20070827
  8. ART 50 [Concomitant]
     Indication: OSTEOARTHRITIS
     Dosage: 50MG PER DAY
     Route: 048
     Dates: end: 20070827
  9. SPASMINE [Concomitant]
     Indication: DRUG USE FOR UNKNOWN INDICATION
     Route: 048
     Dates: end: 20070827
  10. TAHOR [Concomitant]
     Indication: DRUG USE FOR UNKNOWN INDICATION
     Dosage: 10MG PER DAY
     Route: 048
  11. NOROXIN [Concomitant]
     Indication: URINARY TRACT INFECTION
     Route: 048

REACTIONS (5)
  - AMNESIA [None]
  - CONFUSIONAL STATE [None]
  - DISORIENTATION [None]
  - HYPOKALAEMIA [None]
  - HYPONATRAEMIA [None]
